FAERS Safety Report 12278253 (Version 1)
Quarter: 2016Q2

REPORT INFORMATION
  Report Type: Spontaneous
  Country: GB (occurrence: GB)
  Receive Date: 20160418
  Receipt Date: 20160418
  Transmission Date: 20160815
  Serious: Yes (Other)
  Sender: FDA-Public Use
  Company Number: GB-TEVA-651227ACC

PATIENT
  Age: 82 Year
  Sex: Female
  Weight: 65 kg

DRUGS (12)
  1. FENOFIBRATE. [Concomitant]
     Active Substance: FENOFIBRATE
     Dosage: 1 DOSAGE FORMS DAILY;
     Dates: start: 20131021
  2. LEVOTHYROXINE. [Concomitant]
     Active Substance: LEVOTHYROXINE
     Dosage: 3 DOSAGE FORMS DAILY; EACH MORNING
     Dates: start: 20150410
  3. NITROFURANTOIN. [Suspect]
     Active Substance: NITROFURANTOIN
     Dates: start: 20140205
  4. CLARITHROMYCIN. [Concomitant]
     Active Substance: CLARITHROMYCIN
     Dates: start: 20160229, end: 20160307
  5. DOXYCYCLINE. [Concomitant]
     Active Substance: DOXYCYCLINE
     Dosage: TWO NOW THEN ONE DAILY
     Dates: start: 20160301, end: 20160308
  6. AZOPT [Concomitant]
     Active Substance: BRINZOLAMIDE
     Dosage: 4 DOSAGE FORMS DAILY; ONE DROP TWICE DAILY EACH EYE
     Dates: start: 20141204
  7. LANTUS [Concomitant]
     Active Substance: INSULIN GLARGINE
     Dosage: USE AS DIRECTED
     Dates: start: 20120315
  8. NOVORAPID [Concomitant]
     Active Substance: INSULIN ASPART
     Dosage: USE AS DIRECTED
     Dates: start: 20030523
  9. REFRESH OPTIVE [Concomitant]
     Active Substance: CARBOXYMETHYLCELLULOSE SODIUM\GLYCERIN
     Dosage: USE AS DIRECTED
     Dates: start: 20150902
  10. XALATAN [Concomitant]
     Active Substance: LATANOPROST
     Dosage: 2 DOSAGE FORMS DAILY; ONE DROP ONCE DAILY EACH EYE AT BEDTIME
     Dates: start: 20130426
  11. FUROSEMIDE. [Concomitant]
     Active Substance: FUROSEMIDE
     Dosage: 1 DOSAGE FORMS DAILY; EACH MORNING
     Dates: start: 20160304, end: 20160311
  12. PARACETAMOL [Concomitant]
     Active Substance: ACETAMINOPHEN
     Dosage: 8 DOSAGE FORMS DAILY;
     Dates: start: 20160229, end: 20160312

REACTIONS (1)
  - Pneumonia [Unknown]

NARRATIVE: CASE EVENT DATE: 20160316
